FAERS Safety Report 16903313 (Version 1)
Quarter: 2019Q4

REPORT INFORMATION
  Report Type: Spontaneous
  Country: US (occurrence: US)
  Receive Date: 20190817
  Receipt Date: 20190817
  Transmission Date: 20200122
  Serious: No
  Sender: FDA-Public Use
  Company Number: None

PATIENT
  Age: 46 Year
  Sex: Male

DRUGS (1)
  1. BIKTARVY [Suspect]
     Active Substance: BICTEGRAVIR SODIUM\EMTRICITABINE\TENOFOVIR ALAFENAMIDE FUMARATE
     Dates: start: 201903

REACTIONS (4)
  - Chest pain [None]
  - Gastrooesophageal reflux disease [None]
  - Back pain [None]
  - Blood pressure increased [None]

NARRATIVE: CASE EVENT DATE: 20190817
